FAERS Safety Report 4973936-0 (Version None)
Quarter: 2006Q2

REPORT INFORMATION
  Report Type: 
  Country: None (occurrence: None)
  Receive Date: 20060410
  Receipt Date: 20060331
  Transmission Date: 20061013
  Serious: Yes (Hospitalization, Disabling, Other)
  Sender: FDA-Public Use
  Company Number: 2006045938

PATIENT
  Sex: Female
  Weight: 58.9676 kg

DRUGS (8)
  1. ACCUPRIL [Suspect]
     Indication: HYPERTENSION
     Dosage: 40 MG (40 MG, DAILY)
  2. PRAVACHOL [Concomitant]
  3. TRICOR [Concomitant]
  4. LEXAPRO [Concomitant]
  5. PREDNISONE [Concomitant]
  6. VALIUM [Concomitant]
  7. QUININE SULFATE [Concomitant]
  8. RITALIN [Concomitant]

REACTIONS (11)
  - ARTHRITIS [None]
  - CONDITION AGGRAVATED [None]
  - DECREASED ACTIVITY [None]
  - DEPRESSION [None]
  - FIBROMYALGIA [None]
  - IMMUNE SYSTEM DISORDER [None]
  - KNEE ARTHROPLASTY [None]
  - NASOPHARYNGITIS [None]
  - PAIN [None]
  - SJOGREN'S SYNDROME [None]
  - THERAPY NON-RESPONDER [None]
